FAERS Safety Report 18734463 (Version 1)
Quarter: 2021Q1

REPORT INFORMATION
  Report Type: Spontaneous
  Country: ES (occurrence: ES)
  Receive Date: 20210113
  Receipt Date: 20210113
  Transmission Date: 20210419
  Serious: Yes (Life-Threatening, Hospitalization)
  Sender: FDA-Public Use
  Company Number: ES-TEVA-2021-ES-1866925

PATIENT
  Age: 75 Year
  Sex: Female

DRUGS (9)
  1. PREGABALINA (3897A) [Concomitant]
     Active Substance: PREGABALIN
     Dosage: 2 DOSAGE FORMS DAILY;
     Dates: end: 20191209
  2. SINTROM [Concomitant]
     Active Substance: ACENOCOUMAROL
     Dosage: IRREGULAR ACCORDING TO SCHEME
  3. CROMATONBIC B12 1000 INYECTABLE, 8 AMPOLLAS DE 1 ML [Concomitant]
     Dosage: 1 PER MONTH
  4. FLUOXETINA (2331A) [Concomitant]
     Active Substance: FLUOXETINE HYDROCHLORIDE
     Dosage: 20 MILLIGRAM DAILY;
     Dates: end: 20191209
  5. NOVOMIX 30 FLEXPEN 100 U/ML SUSPENSION INYECTABLE EN UNA PLUMA PRECARG [Concomitant]
     Dosage: 56 IU (INTERNATIONAL UNIT) DAILY;
  6. ALPRAZOLAM (99A) [Suspect]
     Active Substance: ALPRAZOLAM
     Indication: INSOMNIA
     Dosage: 1.5 MILLIGRAM DAILY;
     Route: 048
     Dates: start: 20190828, end: 20201204
  7. JANUMET 50 MG/1.000 MG COMPRIMIDOS RECUBIERTOS CON PELICULA, 56 COMPRI [Concomitant]
     Indication: DIABETES MELLITUS
     Dosage: 2 DOSAGE FORMS DAILY;
     Dates: start: 20101203
  8. ZALDIAR 37,5 MG/325 MG COMPRIMIDOS RECUBIERTOS CON PELICULA , 60 COMPR [Concomitant]
     Dosage: 3 DOSAGE FORMS DAILY;
  9. EMCONCOR 5 MG COMPRIMIDOS RECUBIERTOS CON PELICULA , 60 COMPRIMIDOS [Concomitant]
     Dosage: 2 DOSAGE FORMS DAILY;
     Dates: end: 20191204

REACTIONS (1)
  - Altered state of consciousness [Recovered/Resolved]

NARRATIVE: CASE EVENT DATE: 20191204
